FAERS Safety Report 19839916 (Version 1)
Quarter: 2021Q3

REPORT INFORMATION
  Report Type: Other
  Country: US (occurrence: US)
  Receive Date: 20210915
  Receipt Date: 20210915
  Transmission Date: 20211014
  Serious: No
  Sender: FDA-Public Use
  Company Number: US-ROCHE-2910030

PATIENT
  Sex: Female

DRUGS (1)
  1. OCREVUS [Suspect]
     Active Substance: OCRELIZUMAB
     Indication: RELAPSING MULTIPLE SCLEROSIS
     Dosage: DATE OF TREATMENT: 13/AUG/2019, 27/AUG/2019, 25/FEB/2020, 25/AUG/2020,  24/FEB/2021, 24/AUG/2021
     Route: 042

REACTIONS (1)
  - COVID-19 [Not Recovered/Not Resolved]
